FAERS Safety Report 23451374 (Version 2)
Quarter: 2024Q1

REPORT INFORMATION
  Report Type: Report from Study
  Country: CO (occurrence: CO)
  Receive Date: 20240129
  Receipt Date: 20240209
  Transmission Date: 20240410
  Serious: Yes (Death)
  Sender: FDA-Public Use
  Company Number: CO-AstraZeneca-2024A018431

PATIENT
  Age: 135 Day
  Sex: Male

DRUGS (1)
  1. SYNAGIS [Suspect]
     Active Substance: PALIVIZUMAB
     Indication: Respiratory rate
     Dosage: 15 MG/KG MONTHLY
     Route: 030
     Dates: start: 20231102, end: 20240111

REACTIONS (4)
  - Tachycardia [Fatal]
  - Pyrexia [Fatal]
  - Fatigue [Fatal]
  - Pain [Fatal]

NARRATIVE: CASE EVENT DATE: 20240105
